FAERS Safety Report 11733259 (Version 1)
Quarter: 2015Q4

REPORT INFORMATION
  Report Type: Spontaneous
  Country: US (occurrence: US)
  Receive Date: 20151110
  Receipt Date: 20151110
  Transmission Date: 20160304
  Serious: No
  Sender: FDA-Public Use
  Company Number: US-ELI_LILLY_AND_COMPANY-US201205004398

PATIENT
  Sex: Female

DRUGS (1)
  1. FORTEO [Suspect]
     Active Substance: TERIPARATIDE
     Indication: OSTEOPOROSIS
     Dosage: 20 UG, QD
     Dates: start: 20120429

REACTIONS (10)
  - Spinal disorder [Unknown]
  - Arthropathy [Unknown]
  - Back pain [Unknown]
  - Musculoskeletal pain [Unknown]
  - Pain [Unknown]
  - Gait disturbance [Unknown]
  - Fatigue [Unknown]
  - Feeling abnormal [Unknown]
  - Bone disorder [Unknown]
  - Mood altered [Unknown]
